FAERS Safety Report 22928644 (Version 2)
Quarter: 2023Q4

REPORT INFORMATION
  Report Type: Report from Study
  Country: CA (occurrence: CA)
  Receive Date: 20230911
  Receipt Date: 20231030
  Transmission Date: 20240110
  Serious: Yes (Other)
  Sender: FDA-Public Use
  Company Number: CA-MYLANLABS-2023M1089140

PATIENT
  Sex: Male

DRUGS (1)
  1. HULIO [Suspect]
     Active Substance: ADALIMUMAB-FKJP
     Indication: Colitis ulcerative
     Dosage: 40 MILLIGRAM, BIWEEKLY
     Route: 058
     Dates: start: 20230428

REACTIONS (2)
  - Colitis ulcerative [Unknown]
  - Drug ineffective [Unknown]
